FAERS Safety Report 4438271-8 (Version None)
Quarter: 2004Q3

REPORT INFORMATION
  Report Type: 
  Country: None (occurrence: None)
  Receive Date: 20040831
  Receipt Date: 20040706
  Transmission Date: 20050211
  Serious: No
  Sender: FDA-Public Use
  Company Number: US-GLAXOSMITHKLINE-A0517091A

PATIENT
  Age: 50 Year
  Sex: Female

DRUGS (12)
  1. WELLBUTRIN XL [Suspect]
     Indication: DEPRESSION
     Dosage: 300MG PER DAY
     Route: 048
     Dates: start: 20040312
  2. NEURONTIN [Concomitant]
  3. SKELAXIN [Concomitant]
  4. ELAVIL [Concomitant]
  5. XANAX [Concomitant]
  6. TOPROL-XL [Concomitant]
  7. VICODIN [Concomitant]
  8. ADVIL [Concomitant]
  9. TYLENOL [Concomitant]
  10. AMBIEN [Concomitant]
  11. MAXALT [Concomitant]
  12. PROVENTIL [Concomitant]

REACTIONS (4)
  - DRY MOUTH [None]
  - DYSPHAGIA [None]
  - MIGRAINE [None]
  - THROAT TIGHTNESS [None]
